FAERS Safety Report 6609798-5 (Version None)
Quarter: 2010Q1

REPORT INFORMATION
  Report Type: 
  Country: None (occurrence: None)
  Receive Date: 20100302
  Receipt Date: 20100224
  Transmission Date: 20100710
  Serious: Yes (Other)
  Sender: FDA-Public Use
  Company Number: RU-ELI_LILLY_AND_COMPANY-RU201002007176

PATIENT
  Sex: Female
  Weight: 92 kg

DRUGS (16)
  1. PRASUGREL HYDROCHLORIDE [Suspect]
     Indication: ACUTE CORONARY SYNDROME
     Route: 048
     Dates: start: 20100209, end: 20100219
  2. ASPIRIN [Concomitant]
     Dates: start: 20070101, end: 20100206
  3. ASPIRIN [Concomitant]
     Dates: start: 20100207, end: 20100218
  4. ENALAPRIL MALEATE [Concomitant]
     Indication: HYPERTENSION
     Dates: start: 20000101
  5. LOSARTAN POTASSIUM [Concomitant]
     Indication: HYPERTENSION
     Dates: start: 20100207
  6. HYPOTHIAZID [Concomitant]
     Indication: HYPERTENSION
     Dates: start: 20100207
  7. GLUCOSE [Concomitant]
     Indication: MYOCARDIAL ISCHAEMIA
     Dates: start: 20100207
  8. KALII CHLORIDUM [Concomitant]
     Indication: MYOCARDIAL ISCHAEMIA
     Dates: start: 20100207
  9. MAGNESIUM SULFATE [Concomitant]
     Indication: MYOCARDIAL ISCHAEMIA
     Dates: start: 20100208
  10. TRIMETAZIDIN [Concomitant]
     Indication: MYOCARDIAL ISCHAEMIA
     Dates: start: 20100210
  11. ANALGIN /01307701/ [Concomitant]
     Indication: OSTEOCHONDROSIS
     Dates: start: 20100210, end: 20100219
  12. NOVOCAIN [Concomitant]
     Indication: OSTEOCHONDROSIS
     Dates: start: 20100210, end: 20100219
  13. VITAMIN B-12 [Concomitant]
     Indication: OSTEOCHONDROSIS
     Dates: start: 20100210, end: 20100219
  14. METOPROLOL TARTRATE [Concomitant]
     Indication: HYPERTENSION
     Dates: start: 20100217
  15. PIRACETAMUM [Concomitant]
     Indication: PROPHYLAXIS
     Dates: start: 20100215, end: 20100219
  16. METOCLOPRAMIDE HYDROCHLORIDE [Concomitant]
     Indication: PROPHYLAXIS
     Dates: start: 20100218

REACTIONS (1)
  - GASTRIC ULCER [None]
